FAERS Safety Report 7493344-0 (Version None)
Quarter: 2011Q2

REPORT INFORMATION
  Report Type: 
  Country: None (occurrence: None)
  Receive Date: 20110520
  Receipt Date: 20110516
  Transmission Date: 20111010
  Serious: Yes (Hospitalization, Disabling, Other)
  Sender: FDA-Public Use
  Company Number: FR-PFIZER INC-2011066593

PATIENT
  Age: 49 Year
  Sex: Male

DRUGS (7)
  1. IPERTEN [Concomitant]
  2. ATORVASTATIN CALCIUM [Concomitant]
  3. SULFASALAZINE [Suspect]
     Dosage: 1 G, 3X/DAY
     Route: 048
     Dates: start: 20050101
  4. KETOPROFEN [Suspect]
     Indication: RHEUMATOID ARTHRITIS
     Dosage: 100 MG, 1X/DAY
     Route: 048
     Dates: start: 19900101
  5. NEBIVOLOL [Concomitant]
     Dosage: UNK
  6. ARAVA [Suspect]
     Dosage: UNK
     Route: 048
     Dates: start: 20060101, end: 20110201
  7. FORTZAAR [Concomitant]

REACTIONS (2)
  - RENAL FAILURE CHRONIC [None]
  - HYPERTENSIVE NEPHROPATHY [None]
